FAERS Safety Report 9372271 (Version 1)
Quarter: 2013Q2

REPORT INFORMATION
  Report Type: Spontaneous
  Country: JP (occurrence: JP)
  Receive Date: 20130627
  Receipt Date: 20130627
  Transmission Date: 20140414
  Serious: Yes (Other)
  Sender: FDA-Public Use
  Company Number: PHHY2013JP064041

PATIENT
  Sex: 0

DRUGS (1)
  1. CICLOSPORIN [Suspect]
     Indication: HYPERSENSITIVITY

REACTIONS (1)
  - Renal disorder [Unknown]
